FAERS Safety Report 9448512 (Version 1)
Quarter: 2013Q3

REPORT INFORMATION
  Report Type: Spontaneous
  Country: JP (occurrence: None)
  Receive Date: 20130806
  Receipt Date: 20130806
  Transmission Date: 20140515
  Serious: Yes (Hospitalization)
  Sender: FDA-Public Use
  Company Number: FK201302929

PATIENT
  Age: 32 Month
  Sex: Female

DRUGS (4)
  1. FLUDARABINE [Suspect]
     Indication: HYPOPHOSPHATASIA
     Route: 042
  2. CYCLOPHOSPHAMIDE [Suspect]
     Indication: HYPOPHOSPHATASIA
     Route: 042
  3. ANTITHYMOCYTE GLOBULIN [Suspect]
     Indication: HYPOPHOSPHATASIA
  4. IMATINIB [Concomitant]

REACTIONS (2)
  - Leukaemia [None]
  - Chromosome analysis abnormal [None]
